FAERS Safety Report 8726815 (Version 4)
Quarter: 2013Q3

REPORT INFORMATION
  Report Type: Report from Study
  Country: BR (occurrence: BR)
  Receive Date: 20120816
  Receipt Date: 20130923
  Transmission Date: 20140515
  Serious: Yes (Other)
  Sender: FDA-Public Use
  Company Number: BR-ROCHE-1099598

PATIENT
  Sex: Female
  Weight: 52 kg

DRUGS (4)
  1. INTERFERON ALFA-2A [Suspect]
     Indication: HEPATITIS C
     Route: 042
  2. PEG-INTERFERON ALFA 2A [Suspect]
     Indication: HEPATITIS C
     Route: 042
  3. RIBAVIRIN [Concomitant]
     Indication: HEPATITIS C
     Route: 065
  4. MIOSAN [Concomitant]
     Route: 065

REACTIONS (10)
  - Hepatitis C [Recovered/Resolved]
  - Depression [Not Recovered/Not Resolved]
  - Pyrexia [Not Recovered/Not Resolved]
  - Weight decreased [Not Recovered/Not Resolved]
  - Decreased appetite [Not Recovered/Not Resolved]
  - Nausea [Not Recovered/Not Resolved]
  - Chills [Not Recovered/Not Resolved]
  - Hypotension [Not Recovered/Not Resolved]
  - Pain in extremity [Not Recovered/Not Resolved]
  - Pruritus [Not Recovered/Not Resolved]
